FAERS Safety Report 8329059-6 (Version None)
Quarter: 2012Q2

REPORT INFORMATION
  Report Type: 
  Country: None (occurrence: None)
  Receive Date: 20120502
  Receipt Date: 20120418
  Transmission Date: 20120825
  Serious: Yes (Hospitalization, Other)
  Sender: FDA-Public Use
  Company Number: US-MYLANLABS-2009AC000095

PATIENT
  Age: 52 Year
  Sex: Female

DRUGS (71)
  1. DIGOXIN [Suspect]
     Indication: CHEST PAIN
     Route: 048
     Dates: start: 19940101, end: 20090909
  2. LORAZEPAM [Concomitant]
  3. CYCLOBENZAPRINE [Concomitant]
  4. PHENADOZ [Concomitant]
  5. PROAIR HFA [Concomitant]
  6. TEMAZEPAM [Concomitant]
  7. LISINOPRIL [Concomitant]
  8. KLOR-CON [Concomitant]
  9. SPIRONOLACTONE [Concomitant]
  10. POTASSIUM CHLORIDE [Concomitant]
  11. HYDROCORTISONE W/NEOMYCIN SULF/POLYMYXIN B [Concomitant]
  12. ZOLPIDEM [Concomitant]
  13. PERMETHRIN [Concomitant]
  14. PREVACID [Concomitant]
  15. ATIVAN [Concomitant]
  16. ALDACTONE [Concomitant]
  17. THIAZIDE [Concomitant]
  18. PROMETHAZINE [Concomitant]
  19. PROTONIX [Concomitant]
  20. HYDROMORPHONE HCL [Concomitant]
  21. CLIMARA [Concomitant]
  22. FLUTICASONE FUROATE [Concomitant]
     Dosage: DOSE UNIT:
  23. ESTRADIOL [Concomitant]
  24. TRICOR [Concomitant]
  25. MINITRAN [Concomitant]
  26. TRIAMTERENE [Concomitant]
  27. LIDODERM [Concomitant]
     Route: 062
  28. AZITHROMYCIN [Concomitant]
  29. REQUIP [Concomitant]
  30. STADOL [Concomitant]
  31. RONDEC DM /00374301/ [Concomitant]
  32. CEPHALEXIN [Concomitant]
  33. PROMETHEGAN [Concomitant]
  34. ASPIRIN W/BUTALBITAL/CAFFEINE [Concomitant]
  35. HYDROXYZINE HYDROCHLORIDE [Concomitant]
  36. TRIAZOLAM [Concomitant]
  37. DILAUDID [Concomitant]
  38. POTASSIUM CHLORIDE [Concomitant]
  39. DIGOXIN [Suspect]
     Indication: ARRHYTHMIA
     Route: 048
     Dates: start: 19940101, end: 20090909
  40. FUROSEMIDE [Concomitant]
  41. TRICOR [Concomitant]
  42. MORPHINE SULFATE [Concomitant]
  43. MYTUSSIN [Concomitant]
  44. HALCION [Concomitant]
  45. PHENERGAN [Concomitant]
  46. COREG [Concomitant]
  47. AMOXICILLIN [Concomitant]
  48. BENADRYL [Concomitant]
  49. DEMEROL [Concomitant]
  50. NITROGLYCERIN [Concomitant]
  51. BROMAXEFED DM RF [Concomitant]
  52. DEPAKOTE [Concomitant]
  53. DIGOXIN [Suspect]
     Indication: HEART RATE
     Route: 048
     Dates: start: 19940101, end: 20090909
  54. DIGOXIN [Suspect]
     Indication: CARDIAC FAILURE CONGESTIVE
     Route: 048
     Dates: start: 19940101, end: 20090909
  55. BENZONATATE [Concomitant]
  56. AVINZA [Concomitant]
  57. CLARITIN /00413701/ [Concomitant]
  58. VIVELLE-DOT [Concomitant]
  59. CYMBALTA [Concomitant]
  60. CARVEDILOL [Concomitant]
  61. MULTI-VITAMIN [Concomitant]
  62. FLONASE [Concomitant]
  63. LIDOCAINE [Concomitant]
  64. AMBIEN [Concomitant]
  65. FENTANYL-100 [Concomitant]
  66. FLUOCINONIDE [Concomitant]
  67. TRIAMCINOLONE [Concomitant]
  68. TYLENOL (CAPLET) [Concomitant]
  69. COMBIVENT [Concomitant]
  70. OXYCODONE HCL [Concomitant]
  71. CORTISONE ACETATE [Concomitant]

REACTIONS (104)
  - INJURY [None]
  - INTESTINAL OBSTRUCTION [None]
  - HEADACHE [None]
  - HYPERTRIGLYCERIDAEMIA [None]
  - CARDIAC VALVE DISEASE [None]
  - PHOTOPHOBIA [None]
  - SENSORY DISTURBANCE [None]
  - HYPERLIPIDAEMIA [None]
  - MUSCULOSKELETAL CHEST PAIN [None]
  - GROIN PAIN [None]
  - INTERVERTEBRAL DISC PROTRUSION [None]
  - DILATATION VENTRICULAR [None]
  - ELECTROCARDIOGRAM ABNORMAL [None]
  - EXPLORATIVE LAPAROTOMY [None]
  - ANGINA PECTORIS [None]
  - MOOD DISORDER DUE TO A GENERAL MEDICAL CONDITION [None]
  - OVARIAN ADHESION [None]
  - PERICARDIAL EFFUSION [None]
  - IRRITABLE BOWEL SYNDROME [None]
  - LIPOMA [None]
  - SINUS TACHYCARDIA [None]
  - ILL-DEFINED DISORDER [None]
  - CHEST PAIN [None]
  - BUNDLE BRANCH BLOCK LEFT [None]
  - PELVIC PAIN [None]
  - AORTIC VALVE INCOMPETENCE [None]
  - DYSPNOEA [None]
  - ABDOMINAL PAIN UPPER [None]
  - OSTEOARTHRITIS [None]
  - GASTROINTESTINAL TUBE INSERTION [None]
  - MYOCARDIAL ISCHAEMIA [None]
  - CORONARY ARTERY STENOSIS [None]
  - DERMATITIS BULLOUS [None]
  - PAIN IN EXTREMITY [None]
  - NEOPLASM [None]
  - FALL [None]
  - LIGAMENT SPRAIN [None]
  - PELVIC ADHESIONS [None]
  - DYSPNOEA EXERTIONAL [None]
  - MALAISE [None]
  - TENDERNESS [None]
  - CARDIAC MURMUR [None]
  - DEPRESSION [None]
  - CARDIOACTIVE DRUG LEVEL DECREASED [None]
  - EJECTION FRACTION DECREASED [None]
  - GASTROOESOPHAGEAL REFLUX DISEASE [None]
  - COSTOCHONDRITIS [None]
  - NECK PAIN [None]
  - RASH VESICULAR [None]
  - OVARIAN DISORDER [None]
  - HYPERSOMNIA [None]
  - FACET JOINT SYNDROME [None]
  - PAIN [None]
  - ECONOMIC PROBLEM [None]
  - CATHETERISATION CARDIAC [None]
  - ENDOSCOPY [None]
  - ANXIETY [None]
  - ADNEXA UTERI MASS [None]
  - SALPINGECTOMY [None]
  - ABDOMINAL ADHESIONS [None]
  - ARTERIOSCLEROSIS [None]
  - MITRAL VALVE INCOMPETENCE [None]
  - TRICUSPID VALVE INCOMPETENCE [None]
  - PALPITATIONS [None]
  - OBESITY [None]
  - ASTHMA [None]
  - CARDIAC DISORDER [None]
  - PHONOPHOBIA [None]
  - OEDEMA PERIPHERAL [None]
  - CONTUSION [None]
  - MUSCLE STRAIN [None]
  - ARTHRALGIA [None]
  - PARAESTHESIA [None]
  - HYPOPERFUSION [None]
  - IMPLANTABLE DEFIBRILLATOR INSERTION [None]
  - MUSCULOSKELETAL PAIN [None]
  - CARDIOMYOPATHY [None]
  - PROCEDURAL PAIN [None]
  - STRESS [None]
  - CORONARY ARTERY DISEASE [None]
  - VENTRICULAR HYPOKINESIA [None]
  - HYPOAESTHESIA [None]
  - MYALGIA [None]
  - DIZZINESS [None]
  - LEFT VENTRICULAR DYSFUNCTION [None]
  - EXOSTOSIS [None]
  - DYSPAREUNIA [None]
  - SALPINGITIS [None]
  - FATIGUE [None]
  - PERITONEAL ADHESIONS [None]
  - CARDIAC FAILURE CONGESTIVE [None]
  - MIGRAINE [None]
  - ASTHENIA [None]
  - INCISION SITE ERYTHEMA [None]
  - SPONDYLOLISTHESIS [None]
  - FIBROMYALGIA [None]
  - CHEST DISCOMFORT [None]
  - OVARIAN CYST [None]
  - MYOCARDIAL INFARCTION [None]
  - MENTAL DISORDER [None]
  - WEIGHT INCREASED [None]
  - HYPERTENSION [None]
  - INSOMNIA [None]
  - MOTOR DYSFUNCTION [None]
